FAERS Safety Report 13124884 (Version 4)
Quarter: 2018Q2

REPORT INFORMATION
  Report Type: Spontaneous
  Country: US (occurrence: US)
  Receive Date: 20170118
  Receipt Date: 20180420
  Transmission Date: 20180711
  Serious: No
  Sender: FDA-Public Use
  Company Number: US-BAYER-2017-009661

PATIENT
  Age: 82 Year
  Sex: Male
  Weight: 82 kg

DRUGS (4)
  1. MIRALAX [Suspect]
     Active Substance: POLYETHYLENE GLYCOL 3350
     Indication: GASTROINTESTINAL DISORDER
     Dosage: UNK (17 G WITH 8 OUNCES OF WATER)
     Route: 048
  2. MIRALAX [Suspect]
     Active Substance: POLYETHYLENE GLYCOL 3350
     Indication: GASTROINTESTINAL DISORDER
     Dosage: UNK (17 G WITH 8 OUNCES OF WATER)
     Route: 048
     Dates: start: 201609, end: 20161221
  3. SENOKOT [SENNOSIDE A+B] [Concomitant]
  4. MIRALAX [Suspect]
     Active Substance: POLYETHYLENE GLYCOL 3350
     Indication: CONSTIPATION PROPHYLAXIS
     Dosage: UNK
     Route: 048
     Dates: end: 20170821

REACTIONS (6)
  - Incorrect drug administration duration [Unknown]
  - Incorrect drug administration duration [Unknown]
  - Product prescribing issue [Unknown]
  - Blood sodium decreased [Unknown]
  - Inappropriate schedule of drug administration [Unknown]
  - Incorrect dosage administered [Unknown]

NARRATIVE: CASE EVENT DATE: 201609
